FAERS Safety Report 5669376-1 (Version None)
Quarter: 2008Q1

REPORT INFORMATION
  Report Type: 
  Country: None (occurrence: None)
  Receive Date: 20080317
  Receipt Date: 20080304
  Transmission Date: 20080703
  Serious: Yes (Hospitalization)
  Sender: FDA-Public Use
  Company Number: GB-TYCO HEALTHCARE/MALLINCKRODT-T200800511

PATIENT

DRUGS (1)
  1. METHADOSE [Suspect]
     Route: 048

REACTIONS (2)
  - DRUG TOXICITY [None]
  - ENCEPHALITIS [None]
